FAERS Safety Report 12607543 (Version 1)
Quarter: 2016Q3

REPORT INFORMATION
  Report Type: Report from Study
  Country: US (occurrence: US)
  Receive Date: 20160729
  Receipt Date: 20160729
  Transmission Date: 20161109
  Serious: No
  Sender: FDA-Public Use
  Company Number: US-AMGEN-USASL2016097241

PATIENT
  Age: 46 Year
  Sex: Female

DRUGS (1)
  1. ENBREL [Suspect]
     Active Substance: ETANERCEPT
     Indication: RHEUMATOID ARTHRITIS
     Dosage: UNK UNK, QWK
     Route: 065
     Dates: start: 20160503

REACTIONS (5)
  - Musculoskeletal pain [Unknown]
  - Arthropathy [Unknown]
  - Pain in extremity [Unknown]
  - Arthritis [Unknown]
  - Ligament rupture [Unknown]

NARRATIVE: CASE EVENT DATE: 2016
